FAERS Safety Report 7187284-4 (Version None)
Quarter: 2010Q4

REPORT INFORMATION
  Report Type: 
  Country: None (occurrence: None)
  Receive Date: 20101222
  Receipt Date: 20101209
  Transmission Date: 20110411
  Serious: Yes (Hospitalization)
  Sender: FDA-Public Use
  Company Number: JP-AMGEN-JPNSP2010002276

PATIENT

DRUGS (11)
  1. ENBREL [Suspect]
     Indication: RHEUMATOID ARTHRITIS
     Dosage: 25 MG, 2X/WEEK
     Route: 058
     Dates: start: 20070205, end: 20090331
  2. PREDNISOLONE [Concomitant]
     Indication: RHEUMATOID ARTHRITIS
     Dosage: 20 MG
     Route: 048
     Dates: start: 20060101
  3. METHOTREXATE [Concomitant]
     Indication: RHEUMATOID ARTHRITIS
     Dosage: UNK UNK, UNK
     Route: 048
     Dates: start: 20050601
  4. RABEPRAZOLE SODIUM [Concomitant]
     Dosage: 20 MG 1X/DAY
     Route: 048
     Dates: start: 20090525
  5. MUCOSTA [Concomitant]
     Dosage: 100 MG, 3X/DAY
     Route: 048
     Dates: start: 20090525
  6. LOXONIN                            /00890702/ [Concomitant]
     Dosage: 60 MG, 3X/DAY
     Route: 048
     Dates: start: 20090525
  7. MICARDIS [Concomitant]
     Dosage: 40 MG, 1X/DAY
     Route: 048
     Dates: start: 20090525
  8. FOLIAMIN [Concomitant]
     Dosage: 5 MG, WEEKLY
     Route: 048
     Dates: start: 20090525
  9. NITOROL [Concomitant]
     Dosage: 20 MG, 2X/DAY
     Route: 048
     Dates: start: 20090525
  10. CIBENOL [Concomitant]
     Dosage: 100 MG, 3X/DAY
     Route: 048
     Dates: start: 20090525
  11. ALENDRONATE SODIUM [Concomitant]
     Dosage: 35 MG, WEEKLY
     Dates: start: 20090525

REACTIONS (1)
  - PLEURISY [None]
